FAERS Safety Report 17366432 (Version 4)
Quarter: 2023Q1

REPORT INFORMATION
  Report Type: Report from Study
  Country: NL (occurrence: NL)
  Receive Date: 20200204
  Receipt Date: 20230210
  Transmission Date: 20230417
  Serious: Yes (Death, Other)
  Sender: FDA-Public Use
  Company Number: NL-JNJFOC-20200140419

PATIENT
  Sex: Male

DRUGS (3)
  1. ABIRATERONE ACETATE [Suspect]
     Active Substance: ABIRATERONE ACETATE
     Indication: Prostate cancer metastatic
     Route: 048
  2. ENZALUTAMIDE [Suspect]
     Active Substance: ENZALUTAMIDE
     Indication: Prostate cancer metastatic
     Route: 048
  3. PREDNISOLONE [Concomitant]
     Active Substance: PREDNISOLONE
     Indication: Prostate cancer metastatic
     Route: 048

REACTIONS (64)
  - Acute coronary syndrome [Fatal]
  - Hypertensive crisis [Fatal]
  - Cardiac failure [Fatal]
  - Upper gastrointestinal haemorrhage [Fatal]
  - Spinal compression fracture [Fatal]
  - Sepsis [Fatal]
  - Pulmonary embolism [Fatal]
  - Infection [Unknown]
  - Cardiac disorder [Unknown]
  - Renal failure [Unknown]
  - Hydronephrosis [Unknown]
  - Neuropathy peripheral [Unknown]
  - Leukopenia [Unknown]
  - Neutropenia [Unknown]
  - Thrombocytopenia [Unknown]
  - Pyelocaliectasis [Unknown]
  - Hypokalaemia [Unknown]
  - Spinal cord compression [Unknown]
  - Acute kidney injury [Unknown]
  - Urinary retention [Unknown]
  - Fracture [Unknown]
  - Abdominal pain [Unknown]
  - Oedema peripheral [Unknown]
  - Sciatica [Unknown]
  - Radiculopathy [Unknown]
  - Pain in extremity [Unknown]
  - Back pain [Unknown]
  - Anaemia [Unknown]
  - Fatigue [Unknown]
  - Arthralgia [Unknown]
  - Asthenia [Unknown]
  - Nausea [Unknown]
  - Flank pain [Unknown]
  - Neck pain [Unknown]
  - Hypertension [Unknown]
  - Decreased appetite [Unknown]
  - Musculoskeletal pain [Unknown]
  - Haematuria [Unknown]
  - Vomiting [Unknown]
  - Lymphopenia [Unknown]
  - Dysgeusia [Unknown]
  - Lower urinary tract symptoms [Unknown]
  - Micturition urgency [Unknown]
  - Urinary incontinence [Unknown]
  - Depression [Unknown]
  - Anxiety [Unknown]
  - Confusional state [Unknown]
  - Disorientation [Unknown]
  - Sleep disorder [Unknown]
  - Dysuria [Unknown]
  - Stomatitis [Unknown]
  - Weight decreased [Unknown]
  - Dyspnoea [Unknown]
  - Diarrhoea [Unknown]
  - Constipation [Unknown]
  - Pollakiuria [Unknown]
  - Alanine aminotransferase increased [Unknown]
  - Aspartate aminotransferase increased [Unknown]
  - Dizziness [Unknown]
  - Insomnia [Unknown]
  - Pyrexia [Unknown]
  - Paraesthesia [Unknown]
  - Dyspepsia [Unknown]
  - Persistent depressive disorder [Unknown]
